FAERS Safety Report 20035559 (Version 2)
Quarter: 2021Q4

REPORT INFORMATION
  Report Type: Spontaneous
  Country: US (occurrence: US)
  Receive Date: 20211104
  Receipt Date: 20211117
  Transmission Date: 20220303
  Serious: Yes (Life-Threatening, Hospitalization)
  Sender: FDA-Public Use
  Company Number: US-TEVA-2021-US-1972780

PATIENT
  Age: 24 Year
  Sex: Male

DRUGS (15)
  1. PROPOFOL [Suspect]
     Active Substance: PROPOFOL
     Indication: Sedation
     Route: 065
  2. ALBUTEROL [Suspect]
     Active Substance: ALBUTEROL
     Indication: Status asthmaticus
     Dosage: NEBULISED
     Route: 055
  3. ALBUTEROL [Suspect]
     Active Substance: ALBUTEROL
  4. ALBUTEROL [Suspect]
     Active Substance: ALBUTEROL
  5. ALBUTEROL [Suspect]
     Active Substance: ALBUTEROL
  6. KETAMINE [Suspect]
     Active Substance: KETAMINE
     Indication: Sedation
     Route: 041
  7. FENTANYL [Suspect]
     Active Substance: FENTANYL
     Indication: Sedation
     Dosage: MAXIMUM DOSE
     Route: 065
  8. METHYLPREDNISOLONE [Concomitant]
     Active Substance: METHYLPREDNISOLONE
     Indication: Status asthmaticus
     Route: 042
  9. MAGNESIUM SULFATE [Concomitant]
     Active Substance: MAGNESIUM SULFATE
     Indication: Status asthmaticus
     Route: 042
  10. AMPICILLIN SODIUM\SULBACTAM SODIUM [Concomitant]
     Active Substance: AMPICILLIN SODIUM\SULBACTAM SODIUM
     Indication: Status asthmaticus
     Route: 042
  11. SODIUM CHLORIDE [Concomitant]
     Active Substance: SODIUM CHLORIDE
     Indication: Status asthmaticus
     Route: 040
  12. SODIUM CHLORIDE [Concomitant]
     Active Substance: SODIUM CHLORIDE
     Indication: Lactic acidosis
     Route: 040
  13. SUCCINYLCHOLINE [Concomitant]
     Active Substance: SUCCINYLCHOLINE
     Indication: Endotracheal intubation
     Route: 042
  14. VANCOMYCIN [Concomitant]
     Active Substance: VANCOMYCIN
     Indication: Endocarditis
     Route: 065
  15. PIPERACILLIN SODIUM\TAZOBACTAM SODIUM [Concomitant]
     Active Substance: PIPERACILLIN SODIUM\TAZOBACTAM SODIUM
     Indication: Endocarditis
     Route: 065

REACTIONS (5)
  - Respiratory acidosis [Recovering/Resolving]
  - Status asthmaticus [Recovering/Resolving]
  - Drug withdrawal syndrome [Recovering/Resolving]
  - Symptom masked [Recovering/Resolving]
  - Lactic acidosis [Recovering/Resolving]
